FAERS Safety Report 24888391 (Version 1)
Quarter: 2025Q1

REPORT INFORMATION
  Report Type: Spontaneous
  Country: US (occurrence: US)
  Receive Date: 20250127
  Receipt Date: 20250127
  Transmission Date: 20250409
  Serious: Yes (Other)
  Sender: COOPERSURGICAL
  Company Number: US-COOPERSURGICAL, INC.-2025CPS000243

PATIENT
  Age: 39 Year
  Sex: Female
  Weight: 108.84 kg

DRUGS (1)
  1. PARAGARD T 380A [Suspect]
     Active Substance: COPPER
     Indication: Contraception
     Route: 015
     Dates: start: 20110601

REACTIONS (14)
  - Reproductive complication associated with device [Unknown]
  - Device breakage [Unknown]
  - Foreign body in reproductive tract [Unknown]
  - Complication of device removal [Unknown]
  - Embedded device [Unknown]
  - Depression [Not Recovered/Not Resolved]
  - Anxiety [Not Recovered/Not Resolved]
  - Hypertension [Unknown]
  - Device dislocation [Unknown]
  - Pain [Recovered/Resolved]
  - Muscle spasms [Recovered/Resolved]
  - Pyrexia [Recovered/Resolved]
  - Heavy menstrual bleeding [Recovered/Resolved]
  - Hypersensitivity [Unknown]

NARRATIVE: CASE EVENT DATE: 20171001
